FAERS Safety Report 9521217 (Version 1)
Quarter: 2013Q1

REPORT INFORMATION
  Report Type: Spontaneous
  Country: US (occurrence: None)
  Receive Date: 20130305
  Receipt Date: 20130305
  Transmission Date: 20140127
  Serious: Yes (Other)
  Sender: FDA-Public Use
  Company Number: 163-21880-12080306

PATIENT
  Age: 76 Year
  Sex: Female

DRUGS (8)
  1. REVLIMID [Suspect]
     Indication: PLASMA CELL MYELOMA
     Dosage: 21 IN 28 D
     Route: 048
     Dates: start: 20120327
  2. DEXAMETHASONE (DEXAMETHASONE) [Concomitant]
  3. EPOETIN (EPOETIN ALFA) [Concomitant]
  4. LOSARTAN (LOSARTAN) [Concomitant]
  5. ATENOLOL (ATENOLOL) [Concomitant]
  6. HCTZ (HYDROCHLOROTHIAZIDE) [Concomitant]
  7. KCL (POTASSIUM CHLORIDE) [Concomitant]
  8. ATORVASTATIN (ATORVASTATIN) [Concomitant]

REACTIONS (6)
  - Renal impairment [None]
  - Asthenia [None]
  - Fatigue [None]
  - Decreased appetite [None]
  - Weight decreased [None]
  - Dysgeusia [None]
